FAERS Safety Report 9277336 (Version 1)
Quarter: 2013Q2

REPORT INFORMATION
  Report Type: Spontaneous
  Country: US (occurrence: None)
  Receive Date: 20130503
  Receipt Date: 20130503
  Transmission Date: 20140414
  Serious: Yes (Hospitalization)
  Sender: FDA-Public Use
  Company Number: None

PATIENT
  Age: 74 Year
  Sex: Male

DRUGS (2)
  1. TRANSDERM SCOP [Suspect]
     Indication: MOTION SICKNESS
     Dosage: PATCH BEHIND EAR  Q 72 HRS
     Dates: start: 20130329, end: 20130330
  2. TRANSDERM SCOP [Suspect]
     Indication: MOTION SICKNESS
     Dosage: PATCH BEHIND EAR  Q 72 HRS
     Dates: start: 20130329, end: 20130330

REACTIONS (1)
  - Confusional state [None]
